FAERS Safety Report 9610868 (Version 3)
Quarter: 2014Q2

REPORT INFORMATION
  Report Type: Report from Study
  Country: GB (occurrence: GB)
  Receive Date: 20131009
  Receipt Date: 20140409
  Transmission Date: 20141212
  Serious: Yes (Hospitalization)
  Sender: FDA-Public Use
  Company Number: PHFR2013GB005573

PATIENT
  Age: 77 Year
  Sex: Male

DRUGS (11)
  1. LUCENTIS [Suspect]
     Indication: AGE-RELATED MACULAR DEGENERATION
     Dosage: 0.5 MG, UNK
     Route: 031
     Dates: start: 20111004
  2. LUCENTIS [Suspect]
     Dosage: 0.5 MG, UNK
     Route: 031
     Dates: start: 20130109
  3. LUCENTIS [Suspect]
     Dosage: 0.5 MG, UNK
     Route: 031
     Dates: start: 20130814
  4. METHOTREXATE [Suspect]
     Indication: RHEUMATOID ARTHRITIS
     Dosage: UNK UKN, UNK
     Dates: start: 201203
  5. SULPHASALAZINE [Concomitant]
     Indication: RHEUMATOID ARTHRITIS
     Dosage: UNK UKN, UNK
     Dates: start: 1992
  6. THYROXINE [Concomitant]
     Indication: HYPOTHYROIDISM
     Dosage: UNK UKN, UNK
     Dates: start: 1992
  7. RAMIPRIL [Concomitant]
     Indication: HYPERTENSION
     Dosage: UNK UKN, UNK
     Dates: start: 2002, end: 20130509
  8. RAMIPRIL [Concomitant]
     Dosage: UNK UKN, UNK
     Dates: start: 20130509
  9. SIMVASTATIN [Concomitant]
     Indication: HYPERLIPIDAEMIA
     Dosage: UNK UKN, UNK
     Dates: start: 2002, end: 20130509
  10. SIMVASTATIN [Concomitant]
     Dosage: UNK UKN, UNK
     Dates: start: 20130509
  11. LANSOPRAZOLE [Concomitant]
     Indication: GASTROOESOPHAGEAL REFLUX DISEASE
     Dosage: UNK UKN, UNK
     Dates: start: 2002

REACTIONS (3)
  - Acute myocardial infarction [Recovered/Resolved]
  - Non-Hodgkin^s lymphoma [Recovering/Resolving]
  - Anaemia [Recovered/Resolved]
